FAERS Safety Report 5852266-9 (Version None)
Quarter: 2008Q3

REPORT INFORMATION
  Report Type: 
  Country: None (occurrence: None)
  Receive Date: 20080819
  Receipt Date: 20080804
  Transmission Date: 20090109
  Serious: Yes (Death, Hospitalization)
  Sender: FDA-Public Use
  Company Number: KADN20080321

PATIENT
  Age: 58 Year
  Sex: Female

DRUGS (8)
  1. MORPHINE EXTENDED RELEASE 30 MG [Suspect]
     Dosage: ORAL
     Route: 048
     Dates: end: 20060101
  2. METHOCARBAMOL [Suspect]
     Dosage: ORAL
     Route: 048
  3. METHADONE HCL [Suspect]
     Dosage: ORAL
     Route: 048
     Dates: end: 20060101
  4. LORAZEPAM [Suspect]
     Dosage: ORAL
     Route: 048
     Dates: end: 20060101
  5. DEXAMETHASONE 0.5MG TAB [Suspect]
     Dosage: ORAL
     Route: 048
     Dates: end: 20060101
  6. METOLAZONE [Suspect]
     Dosage: ORAL
     Route: 048
     Dates: end: 20060101
  7. POTASSIUM CHLORIDE [Suspect]
     Dosage: ORAL
     Route: 048
     Dates: end: 20060101
  8. FLECAINIDE ACETATE [Suspect]
     Dosage: ORAL
     Route: 048
     Dates: end: 20060101

REACTIONS (23)
  - ABDOMINAL DISTENSION [None]
  - ALANINE AMINOTRANSFERASE INCREASED [None]
  - ASPARTATE AMINOTRANSFERASE INCREASED [None]
  - BLOOD BICARBONATE INCREASED [None]
  - BLOOD CREATINE PHOSPHOKINASE INCREASED [None]
  - BLOOD CREATINE PHOSPHOKINASE MB INCREASED [None]
  - BLOOD PH DECREASED [None]
  - BLOOD POTASSIUM DECREASED [None]
  - BLOOD PRESSURE DIASTOLIC DECREASED [None]
  - CARDIAC ARREST [None]
  - CARDIAC ENZYMES INCREASED [None]
  - DECEREBRATION [None]
  - DRUG INEFFECTIVE [None]
  - ELECTROCARDIOGRAM QT PROLONGED [None]
  - ERYTHEMA [None]
  - HAEMOGLOBIN DECREASED [None]
  - METASTASES TO CENTRAL NERVOUS SYSTEM [None]
  - MYOGLOBIN BLOOD INCREASED [None]
  - POSTURING [None]
  - PUPILLARY REFLEX IMPAIRED [None]
  - RESPIRATORY RATE DECREASED [None]
  - SINUS TACHYCARDIA [None]
  - TROPONIN INCREASED [None]
